FAERS Safety Report 18856513 (Version 1)
Quarter: 2021Q1

REPORT INFORMATION
  Report Type: Spontaneous
  Country: US (occurrence: US)
  Receive Date: 20210207
  Receipt Date: 20210207
  Transmission Date: 20210420
  Serious: Yes (Death, Other)
  Sender: FDA-Public Use
  Company Number: US-ROCHE-2763328

PATIENT
  Age: 84 Year
  Sex: Female

DRUGS (3)
  1. ACTIVASE [Suspect]
     Active Substance: ALTEPLASE
     Indication: ENCEPHALOMALACIA
     Dosage: 10% AS A BOLUS FOLLOWED BY AN INTRAVENOUS?INFUSION OF THE REMAINING DOSE
     Route: 042
  2. ASPIRIN. [Concomitant]
     Active Substance: ASPIRIN
  3. ACTIVASE [Suspect]
     Active Substance: ALTEPLASE
     Dosage: REST OF DOSE AS INFUSION
     Route: 042

REACTIONS (4)
  - Vomiting [Unknown]
  - Angioedema [Recovered/Resolved]
  - Nausea [Unknown]
  - Death [Fatal]
